FAERS Safety Report 6702548-3 (Version None)
Quarter: 2010Q2

REPORT INFORMATION
  Report Type: 
  Country: None (occurrence: None)
  Receive Date: 20100429
  Receipt Date: 20100416
  Transmission Date: 20101027
  Serious: Yes (Other)
  Sender: FDA-Public Use
  Company Number: US-ELI_LILLY_AND_COMPANY-US201001001399

PATIENT
  Sex: Female

DRUGS (11)
  1. FORTEO [Suspect]
     Indication: OSTEOPOROSIS
     Dosage: 20 UG, DAILY (1/D)
     Dates: start: 20090201, end: 20091001
  2. ALPRAZOLAM [Concomitant]
  3. PARNATE [Concomitant]
  4. CALCIUM [Concomitant]
  5. POTASSIUM CHLORIDE [Concomitant]
  6. PLETAL [Concomitant]
  7. NIFEDIPINE [Concomitant]
     Dosage: 30 MG, DAILY (1/D)
  8. XANAX [Concomitant]
     Dosage: UNK, AS NEEDED
  9. MULTI-VITAMIN [Concomitant]
  10. AGGRENOX [Concomitant]
     Dosage: UNK, 2/D
  11. FOSAMAX [Concomitant]

REACTIONS (2)
  - HYPERCALCAEMIA [None]
  - STRESS [None]
